FAERS Safety Report 16734774 (Version 2)
Quarter: 2020Q1

REPORT INFORMATION
  Report Type: Spontaneous
  Country: CA (occurrence: CA)
  Receive Date: 20190823
  Receipt Date: 20200319
  Transmission Date: 20200409
  Serious: Yes (Hospitalization)
  Sender: FDA-Public Use
  Company Number: CA-AUROBINDO-AUR-APL-2019-056080

PATIENT
  Sex: Female

DRUGS (6)
  1. GEMCITABINE. [Suspect]
     Active Substance: GEMCITABINE
     Indication: OVARIAN CANCER
     Dosage: UNK
     Route: 065
  2. TYLENOL [Concomitant]
     Active Substance: ACETAMINOPHEN
     Indication: PRODUCT USED FOR UNKNOWN INDICATION
     Dosage: 650 MILLIGRAM
     Route: 048
  3. CANNABIS SATIVA [Concomitant]
     Active Substance: CANNABIS SATIVA FLOWERING TOP
     Indication: PRODUCT USED FOR UNKNOWN INDICATION
     Dosage: UNK
     Route: 065
  4. SIMVASTATIN TABLET [Suspect]
     Active Substance: SIMVASTATIN
     Indication: OVARIAN CANCER
     Dosage: 863 MILLIGRAM, 1 EVERY 3 WEEK
     Route: 042
  5. MONTELUKAST SODIUM. [Concomitant]
     Active Substance: MONTELUKAST SODIUM
     Indication: PRODUCT USED FOR UNKNOWN INDICATION
     Dosage: UNK
     Route: 065
  6. DIPHENHYDRAMINE. [Concomitant]
     Active Substance: DIPHENHYDRAMINE
     Indication: PRODUCT USED FOR UNKNOWN INDICATION
     Dosage: 50 MILLIGRAM
     Route: 048

REACTIONS (9)
  - Malaise [Recovering/Resolving]
  - Photophobia [Recovering/Resolving]
  - Blood pressure increased [Recovering/Resolving]
  - Epistaxis [Recovering/Resolving]
  - Intra-abdominal fluid collection [Recovering/Resolving]
  - Arthralgia [Recovering/Resolving]
  - Dry eye [Recovering/Resolving]
  - Upper respiratory tract infection [Recovering/Resolving]
  - Eye pain [Recovering/Resolving]
